FAERS Safety Report 9768333 (Version 2)
Quarter: 2014Q1

REPORT INFORMATION
  Report Type: Report from Study
  Country: CA (occurrence: CA)
  Receive Date: 20131217
  Receipt Date: 20140128
  Transmission Date: 20141002
  Serious: Yes (Death, Hospitalization)
  Sender: FDA-Public Use
  Company Number: CA-ABBVIE-13P-028-1180792-00

PATIENT
  Age: 50 Year
  Sex: Female

DRUGS (8)
  1. HUMIRA [Suspect]
     Indication: PSORIATIC ARTHROPATHY
     Route: 058
     Dates: start: 201209, end: 2013
  2. HUMIRA [Suspect]
     Route: 058
     Dates: start: 201311, end: 201312
  3. METHOTREXATE [Concomitant]
     Indication: PSORIATIC ARTHROPATHY
     Route: 058
     Dates: end: 201312
  4. METHOTREXATE [Concomitant]
  5. INDOMETHACIN [Concomitant]
     Indication: PSORIATIC ARTHROPATHY
     Route: 054
     Dates: end: 201312
  6. INDOMETHACIN [Concomitant]
     Indication: PAIN MANAGEMENT
     Dosage: EVERY HOURS OF SLEEP
     Route: 048
  7. AMITRIPTYLINE [Concomitant]
     Indication: PRODUCT USED FOR UNKNOWN INDICATION
     Dosage: EVERY HOURS OF SLEEP
     Route: 048
  8. LIDOCAINE [Concomitant]
     Indication: POST PROCEDURAL DISCOMFORT
     Dates: start: 201312, end: 201312

REACTIONS (9)
  - Cerebral haemorrhage [Fatal]
  - Cerebrovascular accident [Fatal]
  - Cerebral haematoma [Fatal]
  - Hypertension [Fatal]
  - Haemorrhage [Fatal]
  - Dizziness [Fatal]
  - Drooling [Fatal]
  - Hypertension [Fatal]
  - Petechiae [Fatal]
